FAERS Safety Report 7033506-X (Version None)
Quarter: 2010Q4

REPORT INFORMATION
  Report Type: 
  Country: None (occurrence: None)
  Receive Date: 20101007
  Receipt Date: 20100929
  Transmission Date: 20110411
  Serious: Yes (Death, Hospitalization, Other)
  Sender: FDA-Public Use
  Company Number: US-AMGEN-QUU436493

PATIENT
  Sex: Male

DRUGS (7)
  1. NPLATE [Suspect]
     Indication: IDIOPATHIC THROMBOCYTOPENIC PURPURA
     Route: 058
     Dates: start: 20100413, end: 20100524
  2. CORTICOSTEROIDS [Concomitant]
  3. PREDNISONE [Concomitant]
     Route: 048
  4. SPIRIVA [Concomitant]
     Route: 048
  5. THEOPHYLLINE [Concomitant]
     Route: 048
  6. LASIX [Concomitant]
     Route: 048
  7. DIGOXIN [Concomitant]
     Route: 048

REACTIONS (4)
  - BRADYCARDIA [None]
  - CARDIOACTIVE DRUG LEVEL INCREASED [None]
  - DRUG LEVEL ABOVE THERAPEUTIC [None]
  - PULMONARY HYPERTENSION [None]
